FAERS Safety Report 9190445 (Version 2)
Quarter: 2013Q2

REPORT INFORMATION
  Report Type: Spontaneous
  Country: US (occurrence: None)
  Receive Date: 20120703
  Receipt Date: 20121031
  Transmission Date: 20140414
  Serious: Yes (Hospitalization)
  Sender: FDA-Public Use
  Company Number: PHEH2012US008673

PATIENT
  Age: 49 Year
  Sex: Female

DRUGS (6)
  1. GILENYA (FTY)CAPSULE, 0.5MG [Suspect]
     Indication: MULTIPLE SCLEROSIS
     Route: 048
     Dates: start: 20111006
  2. WELLBUTRIN (BUPROPION HYDROCHLORIDE) [Concomitant]
  3. XANAX (ALPRAZOLAM) [Concomitant]
  4. CYMBALTA (DULOXETINE HYDROCHLORIDE) [Concomitant]
  5. MIRALAX (MACROGOL) [Concomitant]
  6. LORAZEPAM (LORAZEPAM) [Concomitant]

REACTIONS (1)
  - Multiple sclerosis relapse [None]
